FAERS Safety Report 21995529 (Version 1)
Quarter: 2023Q1

REPORT INFORMATION
  Report Type: Spontaneous
  Country: US (occurrence: None)
  Receive Date: 20230213
  Receipt Date: 20230213
  Transmission Date: 20230417
  Serious: Yes (Hospitalization)
  Sender: FDA-Public Use
  Company Number: None

PATIENT
  Age: 76 Year
  Sex: Female
  Weight: 73.75 kg

DRUGS (6)
  1. VERZENIO [Suspect]
     Active Substance: ABEMACICLIB
     Indication: Breast cancer female
     Dosage: FREQUENCY : TWICE A DAY;?
     Route: 048
     Dates: start: 202204, end: 202302
  2. ANASTROZOLE [Concomitant]
     Active Substance: ANASTROZOLE
  3. ATENOLOL [Concomitant]
     Active Substance: ATENOLOL
  4. DULOXETINE [Concomitant]
     Active Substance: DULOXETINE
  5. LISINOPRIL [Concomitant]
     Active Substance: LISINOPRIL
  6. OLANZAPINE [Concomitant]
     Active Substance: OLANZAPINE

REACTIONS (2)
  - Pericardial effusion [None]
  - Dyspnoea [None]
